FAERS Safety Report 9213597 (Version 1)
Quarter: 2013Q2

REPORT INFORMATION
  Report Type: Spontaneous
  Country: CO (occurrence: CO)
  Receive Date: 20130405
  Receipt Date: 20130405
  Transmission Date: 20140414
  Serious: Yes (Hospitalization)
  Sender: FDA-Public Use
  Company Number: CO-PFIZER INC-2013107241

PATIENT
  Age: 4 Year
  Sex: Female

DRUGS (3)
  1. GENOTROPIN [Suspect]
     Indication: BODY HEIGHT BELOW NORMAL
     Dosage: 0.6 MG, 1X/DAY
     Route: 058
     Dates: start: 201110, end: 201211
  2. GENOTROPIN [Suspect]
     Indication: UNDERWEIGHT
  3. SODIUM BICARBONATE [Concomitant]
     Indication: RENAL TUBULAR ACIDOSIS
     Dosage: 14 ML, 1X/DAY
     Route: 058
     Dates: start: 201009, end: 201211

REACTIONS (2)
  - Pneumonia [Recovered/Resolved]
  - Off label use [Unknown]
